FAERS Safety Report 5441069-5 (Version None)
Quarter: 2007Q3

REPORT INFORMATION
  Report Type: 
  Country: None (occurrence: None)
  Receive Date: 20070831
  Receipt Date: 20070823
  Transmission Date: 20080115
  Serious: Yes (Other)
  Sender: FDA-Public Use
  Company Number: CA-PFIZER INC-2007048993

PATIENT
  Sex: Male
  Weight: 93.9 kg

DRUGS (2)
  1. LIPITOR [Suspect]
     Indication: BLOOD CHOLESTEROL INCREASED
     Route: 048
     Dates: start: 19960101, end: 20060915
  2. ASPIRIN [Concomitant]
     Route: 048

REACTIONS (1)
  - AUTOIMMUNE HEPATITIS [None]
